FAERS Safety Report 8197692-0 (Version None)
Quarter: 2012Q1

REPORT INFORMATION
  Report Type: 
  Country: None (occurrence: None)
  Receive Date: 20120309
  Receipt Date: 20120302
  Transmission Date: 20120608
  Serious: Yes (Other)
  Sender: FDA-Public Use
  Company Number: US-UCBSA-052619

PATIENT
  Age: 37 Year
  Sex: Male

DRUGS (5)
  1. AMITRIPTYLINE HCL [Concomitant]
     Indication: IRRITABLE BOWEL SYNDROME
  2. CIMZIA [Suspect]
     Indication: CROHN'S DISEASE
     Route: 058
     Dates: end: 20110301
  3. MESALAMINE [Concomitant]
     Indication: CROHN'S DISEASE
  4. MERCAPTOPURINE [Concomitant]
     Indication: CROHN'S DISEASE
  5. HUMIRA [Suspect]
     Indication: CROHN'S DISEASE
     Dosage: 40 MG/0.8 ML IN PRE-FILLED SYRINGE
     Dates: start: 20110501

REACTIONS (2)
  - NECK MASS [None]
  - DISSEMINATED LARGE CELL LYMPHOMA [None]
